FAERS Safety Report 8119774 (Version 4)
Quarter: 2012Q4

REPORT INFORMATION
  Report Type: 
  Country: US (occurrence: US)
  Receive Date: 20110902
  Receipt Date: 20120913
  Transmission Date: 20130627
  Serious: Yes (Hospitalization, Disabling, Other)
  Sender: FDA-Public Use
  Company Number: US-ASTRAZENECA-2011SE51129

PATIENT
  Age: 62 Year
  Sex: Male

DRUGS (1)
  1. NEXIUM [Suspect]
     Route: 048
     Dates: start: 200110

REACTIONS (4)
  - Oesophageal carcinoma [Recovered/Resolved]
  - Activities of daily living impaired [Unknown]
  - Neoplasm [Unknown]
  - Malaise [Unknown]
